FAERS Safety Report 19263626 (Version 1)
Quarter: 2021Q2

REPORT INFORMATION
  Report Type: Spontaneous
  Country: US (occurrence: US)
  Receive Date: 20210514
  Receipt Date: 20210514
  Transmission Date: 20210717
  Serious: Yes (Hospitalization, Other)
  Sender: FDA-Public Use
  Company Number: None

PATIENT
  Age: 38 Year
  Sex: Female
  Weight: 60.75 kg

DRUGS (5)
  1. BABY ASPIRIN [Concomitant]
     Active Substance: ASPIRIN
  2. CELEXA [Concomitant]
     Active Substance: CITALOPRAM HYDROBROMIDE
  3. PEPCID [Suspect]
     Active Substance: FAMOTIDINE
     Indication: GASTROOESOPHAGEAL REFLUX DISEASE
     Dosage: ?          QUANTITY:1 TABLET(S);?
     Route: 048
     Dates: start: 20210104, end: 20210512
  4. PEPCID [Suspect]
     Active Substance: FAMOTIDINE
     Indication: GASTRITIS
     Dosage: ?          QUANTITY:1 TABLET(S);?
     Route: 048
     Dates: start: 20210104, end: 20210512
  5. VITAMINS:  B12, D3 [Concomitant]

REACTIONS (5)
  - Heart rate increased [None]
  - Palpitations [None]
  - Chest discomfort [None]
  - Drug ineffective [None]
  - Panic attack [None]

NARRATIVE: CASE EVENT DATE: 20210111
